FAERS Safety Report 11807459 (Version 5)
Quarter: 2016Q1

REPORT INFORMATION
  Report Type: Report from Study
  Country: DE (occurrence: DE)
  Receive Date: 20151207
  Receipt Date: 20160330
  Transmission Date: 20160525
  Serious: Yes (Life-Threatening, Hospitalization, Other)
  Sender: FDA-Public Use
  Company Number: DE-ABBVIE-15K-062-1511166-00

PATIENT
  Age: 43 Year
  Sex: Male
  Weight: 73 kg

DRUGS (15)
  1. HUMIRA [Suspect]
     Active Substance: ADALIMUMAB
     Indication: COLITIS ULCERATIVE
     Route: 058
     Dates: start: 20141114, end: 201504
  2. PREDNISOLONE. [Concomitant]
     Active Substance: PREDNISOLONE
     Dates: start: 20160315
  3. CPS [Concomitant]
     Indication: HYPERKALAEMIA
  4. TACROLIMUS. [Concomitant]
     Active Substance: TACROLIMUS
     Indication: CHOLANGITIS SCLEROSING
     Dates: start: 201511
  5. PANTOZOL [Concomitant]
     Active Substance: PANTOPRAZOLE SODIUM
     Indication: PRODUCT USED FOR UNKNOWN INDICATION
  6. SALOFALK [Concomitant]
     Active Substance: MESALAMINE
     Indication: COLITIS ULCERATIVE
     Dates: start: 201511
  7. VALCYTE [Concomitant]
     Active Substance: VALGANCICLOVIR HYDROCHLORIDE
     Indication: CYTOMEGALOVIRUS INFECTION
     Dates: start: 201511
  8. PREDNISOLONE. [Concomitant]
     Active Substance: PREDNISOLONE
     Indication: COLITIS ULCERATIVE
     Dates: start: 201511
  9. SALOFALK [Concomitant]
     Active Substance: MESALAMINE
     Indication: COLITIS ULCERATIVE
     Route: 054
     Dates: start: 201511
  10. TACROLIMUS. [Concomitant]
     Active Substance: TACROLIMUS
     Indication: COLITIS ULCERATIVE
     Dates: start: 20160315, end: 20160325
  11. ENTYVIO [Suspect]
     Active Substance: VEDOLIZUMAB
     Indication: PRODUCT USED FOR UNKNOWN INDICATION
     Route: 065
     Dates: start: 201603
  12. GANCICLOVIR. [Concomitant]
     Active Substance: GANCICLOVIR
     Indication: CYTOMEGALOVIRUS INFECTION
  13. INFLIXIMAB [Suspect]
     Active Substance: INFLIXIMAB
     Indication: PRODUCT USED FOR UNKNOWN INDICATION
     Route: 065
     Dates: start: 201508
  14. LASIX [Concomitant]
     Active Substance: FUROSEMIDE
     Indication: DIURETIC THERAPY
  15. TACROLIMUS. [Concomitant]
     Active Substance: TACROLIMUS
     Indication: LIVER TRANSPLANT

REACTIONS (17)
  - Multiple organ dysfunction syndrome [Recovered/Resolved]
  - Klebsiella sepsis [Not Recovered/Not Resolved]
  - Sputum discoloured [Not Recovered/Not Resolved]
  - Myalgia [Not Recovered/Not Resolved]
  - Enterococcal sepsis [Not Recovered/Not Resolved]
  - Body temperature increased [Not Recovered/Not Resolved]
  - C-reactive protein increased [Unknown]
  - Cytomegalovirus infection [Unknown]
  - Cholangitis sclerosing [Unknown]
  - Diarrhoea [Unknown]
  - Liver abscess [Not Recovered/Not Resolved]
  - Frequent bowel movements [Unknown]
  - Enterococcal sepsis [Recovered/Resolved]
  - Liver abscess [Not Recovered/Not Resolved]
  - General physical health deterioration [Unknown]
  - Fatigue [Unknown]
  - Klebsiella sepsis [Recovered/Resolved]

NARRATIVE: CASE EVENT DATE: 201508
